FAERS Safety Report 13922145 (Version 1)
Quarter: 2017Q3

REPORT INFORMATION
  Report Type: Spontaneous
  Country: AU (occurrence: AU)
  Receive Date: 20170830
  Receipt Date: 20170830
  Transmission Date: 20171127
  Serious: Yes (Other)
  Sender: FDA-Public Use
  Company Number: AU-CASPER PHARMA LLC-B17-0097-AE

PATIENT

DRUGS (1)
  1. ZYLOPRIM [Suspect]
     Active Substance: ALLOPURINOL
     Indication: ARTHRITIS
     Dosage: UNK
     Route: 065

REACTIONS (7)
  - Drug reaction with eosinophilia and systemic symptoms [Unknown]
  - Acute kidney injury [None]
  - Pancytopenia [None]
  - Rhabdomyolysis [None]
  - Dialysis [None]
  - Histiocytosis haematophagic [None]
  - Liver injury [None]
